FAERS Safety Report 15726839 (Version 9)
Quarter: 2021Q1

REPORT INFORMATION
  Report Type: Report from Study
  Country: None (occurrence: NL)
  Receive Date: 20181217
  Receipt Date: 20210221
  Transmission Date: 20210419
  Serious: Yes (Hospitalization, Other)
  Sender: FDA-Public Use
  Company Number: NL-ABBVIE-18S-114-2590626-00

PATIENT
  Sex: Female
  Weight: 60 kg

DRUGS (6)
  1. DUODOPA [Suspect]
     Active Substance: CARBIDOPA\LEVODOPA
     Dosage: MD 12.5 ML; CD 3.8 ML/H; ED 1.0 ML
     Route: 050
  2. DUODOPA [Suspect]
     Active Substance: CARBIDOPA\LEVODOPA
     Indication: PARKINSON^S DISEASE
     Dosage: MD 12.5 CD 4.3 ED 3
     Route: 050
     Dates: start: 20180226
  3. DUODOPA [Suspect]
     Active Substance: CARBIDOPA\LEVODOPA
     Dosage: CD INCREASED (DOSE BY 0.1 TO 3.7) AND ONE LESS EXTRA DOSE A DAY
     Route: 050
  4. PARACETAMOL [Concomitant]
     Active Substance: ACETAMINOPHEN
     Indication: PRODUCT USED FOR UNKNOWN INDICATION
  5. SINEMET [Concomitant]
     Active Substance: CARBIDOPA\LEVODOPA
     Indication: PRODUCT USED FOR UNKNOWN INDICATION
  6. DUODOPA [Suspect]
     Active Substance: CARBIDOPA\LEVODOPA
     Dosage: MD 12.5 CD 3.4 ED 3.0
     Route: 050

REACTIONS (36)
  - Hyposmia [Not Recovered/Not Resolved]
  - Arthralgia [Not Recovered/Not Resolved]
  - Weight decreased [Recovering/Resolving]
  - Hypophagia [Not Recovered/Not Resolved]
  - Decreased appetite [Not Recovered/Not Resolved]
  - On and off phenomenon [Not Recovered/Not Resolved]
  - Device difficult to use [Unknown]
  - Anxiety [Not Recovered/Not Resolved]
  - Parkinson^s disease [Unknown]
  - Stoma site erythema [Not Recovered/Not Resolved]
  - Malaise [Not Recovered/Not Resolved]
  - Muscle spasms [Not Recovered/Not Resolved]
  - Neuralgia [Not Recovered/Not Resolved]
  - Insomnia [Not Recovered/Not Resolved]
  - Muscle spasms [Unknown]
  - Dyskinesia [Unknown]
  - Fear of disease [Not Recovered/Not Resolved]
  - Musculoskeletal stiffness [Not Recovered/Not Resolved]
  - Pain in extremity [Not Recovered/Not Resolved]
  - Ageusia [Not Recovered/Not Resolved]
  - Discomfort [Not Recovered/Not Resolved]
  - Gait disturbance [Not Recovered/Not Resolved]
  - Musculoskeletal discomfort [Unknown]
  - Weight decreased [Recovered/Resolved]
  - Drug ineffective [Not Recovered/Not Resolved]
  - Nerve block [Not Recovered/Not Resolved]
  - Stoma site hypergranulation [Not Recovered/Not Resolved]
  - Hip fracture [Recovered/Resolved]
  - Back pain [Not Recovered/Not Resolved]
  - Medical device site discolouration [Recovered/Resolved]
  - Tremor [Not Recovered/Not Resolved]
  - Fall [Recovered/Resolved]
  - Rash macular [Recovering/Resolving]
  - Weight decreased [Not Recovered/Not Resolved]
  - Freezing phenomenon [Not Recovered/Not Resolved]
  - Impaired quality of life [Unknown]

NARRATIVE: CASE EVENT DATE: 2018
